FAERS Safety Report 6783975-5 (Version None)
Quarter: 2010Q2

REPORT INFORMATION
  Report Type: 
  Country: None (occurrence: None)
  Receive Date: 20100622
  Receipt Date: 20091229
  Transmission Date: 20101027
  Serious: No
  Sender: FDA-Public Use
  Company Number: US-BRISTOL-MYERS SQUIBB COMPANY-14897987

PATIENT
  Sex: Female

DRUGS (1)
  1. SINEMET [Suspect]
     Indication: PARKINSON'S DISEASE
     Dosage: 1 DOSAGE FORM = 1 TABLET.
     Dates: start: 20091101

REACTIONS (6)
  - AMNESIA [None]
  - HEADACHE [None]
  - HYPOKINESIA [None]
  - NIGHT SWEATS [None]
  - SPEECH DISORDER [None]
  - VISION BLURRED [None]
